FAERS Safety Report 16346706 (Version 1)
Quarter: 2019Q2

REPORT INFORMATION
  Report Type: Spontaneous
  Country: FR (occurrence: FR)
  Receive Date: 20190523
  Receipt Date: 20190523
  Transmission Date: 20190711
  Serious: Yes (Death)
  Sender: FDA-Public Use
  Company Number: FR-MYLANLABS-2019M1048516

PATIENT
  Age: 92 Year
  Sex: Male
  Weight: 75.4 kg

DRUGS (6)
  1. BISOCE 2,5 MG, COMPRIM? PELLICUL? S?CABLE [Suspect]
     Active Substance: BISOPROLOL FUMARATE
     Indication: HYPERTENSION
     Dosage: 1 DOSAGE FORM, QD
     Route: 048
  2. UVEDOSE [Concomitant]
     Active Substance: CHOLECALCIFEROL
     Dosage: UNK
  3. FINASTERIDE. [Suspect]
     Active Substance: FINASTERIDE
     Indication: BENIGN PROSTATIC HYPERPLASIA
     Dosage: 60 MILLIGRAM, QD,1-1/2-0
     Route: 048
     Dates: end: 20180925
  4. DOLIPRANE [Concomitant]
     Active Substance: ACETAMINOPHEN
     Dosage: UNK
  5. ELIQUIS [Suspect]
     Active Substance: APIXABAN
     Indication: CEREBROVASCULAR ACCIDENT
     Dosage: 2 DOSAGE FORM, QD
     Route: 048
     Dates: end: 20181001
  6. RAMIPRIL. [Suspect]
     Active Substance: RAMIPRIL
     Indication: HYPERTENSION
     Dosage: UNK,3.75MG-0-2.5MG
     Route: 048
     Dates: end: 20181001

REACTIONS (6)
  - Fall [Fatal]
  - Coma [Fatal]
  - Dehydration [Fatal]
  - Acute kidney injury [Fatal]
  - Agitation [Fatal]
  - Confusional state [Fatal]

NARRATIVE: CASE EVENT DATE: 20180920
